FAERS Safety Report 14903766 (Version 1)
Quarter: 2018Q2

REPORT INFORMATION
  Report Type: Spontaneous
  Country: None (occurrence: US)
  Receive Date: 20180516
  Receipt Date: 20180516
  Transmission Date: 20180711
  Serious: No
  Sender: FDA-Public Use
  Company Number: US-MEDAC PHARMA, INC.-2047944

PATIENT
  Age: 60 Year
  Sex: Female
  Weight: 53.18 kg

DRUGS (2)
  1. ENBREL [Concomitant]
     Active Substance: ETANERCEPT
  2. RASUVO [Suspect]
     Active Substance: METHOTREXATE SODIUM
     Indication: RHEUMATOID ARTHRITIS
     Dates: end: 20180412

REACTIONS (6)
  - Injection site hypoaesthesia [Recovered/Resolved]
  - Product quality issue [Recovered/Resolved]
  - Muscle twitching [Recovered/Resolved]
  - Injection site reaction [Recovered/Resolved]
  - Injection site paraesthesia [Recovered/Resolved]
  - Skin tightness [Not Recovered/Not Resolved]

NARRATIVE: CASE EVENT DATE: 20180412
